FAERS Safety Report 7369469-7 (Version None)
Quarter: 2011Q1

REPORT INFORMATION
  Report Type: 
  Country: None (occurrence: None)
  Receive Date: 20110323
  Receipt Date: 20110308
  Transmission Date: 20110831
  Serious: Yes (Other)
  Sender: FDA-Public Use
  Company Number: PHHY2011US18390

PATIENT
  Age: 58 Year
  Sex: Male

DRUGS (1)
  1. ZOLEDRONIC ACID [Suspect]
     Indication: MULTIPLE MYELOMA
     Dosage: UNK

REACTIONS (8)
  - OROANTRAL FISTULA [None]
  - HYPOAESTHESIA [None]
  - ACTINOMYCOSIS [None]
  - EXOPHTHALMOS [None]
  - BONE EROSION [None]
  - FACIAL PAIN [None]
  - OSTEOMYELITIS [None]
  - SENSORY LOSS [None]
